FAERS Safety Report 16168296 (Version 1)
Quarter: 2019Q2

REPORT INFORMATION
  Report Type: Spontaneous
  Country: US (occurrence: US)
  Receive Date: 20190304
  Receipt Date: 20190304
  Transmission Date: 20190711
  Serious: No
  Sender: FDA-Public Use
  Company Number: None

PATIENT
  Age: 62 Year
  Sex: Female

DRUGS (1)
  1. COPAXONE [Suspect]
     Active Substance: GLATIRAMER ACETATE
     Dosage: OTHER
     Route: 058
     Dates: start: 20120823

REACTIONS (4)
  - Gait disturbance [None]
  - Product availability issue [None]
  - Condition aggravated [None]
  - Product dose omission [None]

NARRATIVE: CASE EVENT DATE: 20190304
